FAERS Safety Report 5267122-7 (Version None)
Quarter: 2007Q1

REPORT INFORMATION
  Report Type: 
  Country: None (occurrence: None)
  Receive Date: 20070316
  Receipt Date: 20070305
  Transmission Date: 20070707
  Serious: Yes (Other)
  Sender: FDA-Public Use
  Company Number: FR-AMGEN-UK212400

PATIENT
  Age: 66 Year
  Sex: Male

DRUGS (5)
  1. ARANESP [Suspect]
     Indication: ANAEMIA
     Route: 058
     Dates: start: 20070129, end: 20070215
  2. METHOTREXATE [Concomitant]
  3. VINBLASTINE SULFATE [Concomitant]
  4. ADRIAMYCIN PFS [Concomitant]
  5. CISPLATIN [Concomitant]

REACTIONS (3)
  - HYPERTENSION [None]
  - OVERDOSE [None]
  - THROMBOCYTOPENIA [None]
